FAERS Safety Report 8023319-4 (Version None)
Quarter: 2012Q1

REPORT INFORMATION
  Report Type: 
  Country: None (occurrence: None)
  Receive Date: 20120104
  Receipt Date: 20111230
  Transmission Date: 20120608
  Serious: Yes (Hospitalization)
  Sender: FDA-Public Use
  Company Number: GB-ROCHE-1026920

PATIENT

DRUGS (3)
  1. SERTRALINE HCL [Concomitant]
     Indication: DEPRESSION
     Dates: start: 20110501
  2. AVASTIN [Suspect]
     Dates: start: 20111216
  3. AVASTIN [Suspect]
     Indication: MALIGNANT MELANOMA
     Dates: start: 20111014

REACTIONS (1)
  - GRAND MAL CONVULSION [None]
